FAERS Safety Report 25451395 (Version 1)
Quarter: 2025Q2

REPORT INFORMATION
  Report Type: Spontaneous
  Country: US (occurrence: None)
  Receive Date: 20250618
  Receipt Date: 20250618
  Transmission Date: 20250717
  Serious: Yes (Life-Threatening, Hospitalization)
  Sender: FDA-CTU
  Company Number: None

PATIENT
  Age: 58 Year
  Sex: Female
  Weight: 120 kg

DRUGS (4)
  1. CEFTRIAXONE [Suspect]
     Active Substance: CEFTRIAXONE
     Indication: Nephrostomy
     Route: 030
     Dates: start: 20250616, end: 20250616
  2. PENICILLIN [Suspect]
     Active Substance: PENICILLIN
  3. KEFLEX [Suspect]
     Active Substance: CEPHALEXIN
  4. VANCOMYCIN [Suspect]
     Active Substance: VANCOMYCIN

REACTIONS (5)
  - Paraesthesia [None]
  - Paraesthesia [None]
  - Anaphylactic reaction [None]
  - Dysphonia [None]
  - Speech disorder [None]

NARRATIVE: CASE EVENT DATE: 20250616
